FAERS Safety Report 9247672 (Version 1)
Quarter: 2013Q1

REPORT INFORMATION
  Report Type: Spontaneous
  Country: US (occurrence: None)
  Receive Date: 20130305
  Receipt Date: 20130305
  Transmission Date: 20140127
  Serious: Yes (Disabling)
  Sender: FDA-Public Use
  Company Number: 163-21880-12050814

PATIENT
  Age: 59 Year
  Sex: Female

DRUGS (4)
  1. REVLIMID [Suspect]
     Indication: PLASMA CELL MYELOMA
     Dosage: 1 IN 1 D
     Route: 048
     Dates: start: 20091014, end: 2010
  2. RESTATSIS (CICLOSPORIN) [Concomitant]
  3. PAMIDRONATE (PAMIDRONATE DISODIUM) [Concomitant]
  4. FOLIC ACID (FOLIC ACID) [Concomitant]

REACTIONS (3)
  - Neutropenia [None]
  - Pyrexia [None]
  - Bronchitis [None]
